FAERS Safety Report 14384093 (Version 1)
Quarter: 2018Q1

REPORT INFORMATION
  Report Type: Spontaneous
  Country: US (occurrence: US)
  Receive Date: 20180115
  Receipt Date: 20180115
  Transmission Date: 20180509
  Serious: No
  Sender: FDA-Public Use
  Company Number: US-PFIZER INC-2018009492

PATIENT
  Age: 54 Year
  Sex: Female
  Weight: 52.16 kg

DRUGS (3)
  1. LYRICA [Suspect]
     Active Substance: PREGABALIN
     Indication: FIBROMYALGIA
     Dosage: UNK
     Dates: start: 201702
  2. NAPROXEN. [Concomitant]
     Active Substance: NAPROXEN
     Indication: FIBROMYALGIA
     Dosage: UNK
     Dates: start: 2016, end: 2017
  3. ALEVE [Concomitant]
     Active Substance: NAPROXEN SODIUM
     Indication: FIBROMYALGIA
     Dosage: UNK
     Dates: start: 2016, end: 2017

REACTIONS (1)
  - Emotional disorder [Recovered/Resolved]
